FAERS Safety Report 6060585-9 (Version None)
Quarter: 2009Q1

REPORT INFORMATION
  Report Type: 
  Country: None (occurrence: None)
  Receive Date: 20090130
  Receipt Date: 20090130
  Transmission Date: 20090719
  Serious: No
  Sender: FDA-Public Use
  Company Number: None

PATIENT
  Age: 22 Month
  Sex: Male
  Weight: 12.4739 kg

DRUGS (2)
  1. CHILDREN'S TYLENOL (160MG PER 5ML) [Suspect]
     Indication: EAR INFECTION
     Dosage: 5ML EVERY 6-8H PO
     Route: 048
     Dates: start: 20090104, end: 20090110
  2. CHILDREN'S MOTRIN [Suspect]
     Indication: EAR INFECTION
     Dosage: 5ML EVERY 6-8H PO
     Route: 048
     Dates: start: 20090104, end: 20090110

REACTIONS (1)
  - CIRCUMSTANCE OR INFORMATION CAPABLE OF LEADING TO MEDICATION ERROR [None]
